FAERS Safety Report 8390709-X (Version None)
Quarter: 2012Q2

REPORT INFORMATION
  Report Type: 
  Country: None (occurrence: None)
  Receive Date: 20120529
  Receipt Date: 20120523
  Transmission Date: 20120825
  Serious: Yes (Other)
  Sender: FDA-Public Use
  Company Number: PHHY2012BR022652

PATIENT
  Sex: Female
  Weight: 51 kg

DRUGS (3)
  1. LITHIUM CARBONATE [Concomitant]
     Indication: BIPOLAR DISORDER
  2. TOPIRAMATE [Suspect]
     Dosage: 50 MG, BID
     Route: 048
  3. TOPIRAMATE [Suspect]
     Indication: BIPOLAR DISORDER
     Dosage: 50 MG, BID
     Route: 048
     Dates: end: 20120308

REACTIONS (3)
  - NERVE COMPRESSION [None]
  - COORDINATION ABNORMAL [None]
  - ASTHENIA [None]
